FAERS Safety Report 9837035 (Version 1)
Quarter: 2013Q4

REPORT INFORMATION
  Report Type: Spontaneous
  Country: US (occurrence: None)
  Receive Date: 20131121
  Receipt Date: 20131121
  Transmission Date: 20140711
  Serious: Yes (Other)
  Sender: FDA-Public Use
  Company Number: 1000048422

PATIENT
  Age: 81 Year
  Sex: Male

DRUGS (3)
  1. TUDORZA PRESSAIR [Suspect]
     Indication: CHRONIC OBSTRUCTIVE PULMONARY DISEASE
     Dosage: 2000 MCG, RESPIRATORY (INHALATION)
     Route: 055
     Dates: start: 20130903, end: 20130903
  2. ASPIRIN (ACETYLSALICYLIC ACID) (ACETYLSALICYLIC ACID) [Concomitant]
  3. TAMSULOSIN (TAMSULOSIN) (TAMSULOSIN) [Concomitant]

REACTIONS (3)
  - Medication error [None]
  - Accidental overdose [None]
  - Blood pressure increased [None]
